FAERS Safety Report 8838221 (Version 2)
Quarter: 2012Q4

REPORT INFORMATION
  Report Type: 
  Country: US (occurrence: US)
  Receive Date: 20121012
  Receipt Date: 20121030
  Transmission Date: 20130627
  Serious: No
  Sender: FDA-Public Use
  Company Number: US-B.I. PHARMACEUTICALS,INC./RIDGEFIELD-2012-BP-23651BP

PATIENT
  Age: 66 Year
  Sex: Male
  Weight: 181 kg

DRUGS (1)
  1. PRADAXA [Suspect]
     Indication: ATRIAL FIBRILLATION
     Dosage: 300 mg
     Route: 048
     Dates: start: 20120920, end: 20120924

REACTIONS (4)
  - Blood urine present [Recovered/Resolved]
  - Nephrolithiasis [Unknown]
  - Condition aggravated [Unknown]
  - International normalised ratio increased [Unknown]
